FAERS Safety Report 25511627 (Version 1)
Quarter: 2025Q3

REPORT INFORMATION
  Report Type: Spontaneous
  Country: US (occurrence: US)
  Receive Date: 20250703
  Receipt Date: 20250703
  Transmission Date: 20251020
  Serious: No
  Sender: RADIUS PHARM
  Company Number: US-RADIUS HEALTH INC.-2024US007155

PATIENT
  Sex: Female

DRUGS (1)
  1. TYMLOS [Suspect]
     Active Substance: ABALOPARATIDE
     Indication: Senile osteoporosis
     Route: 058
     Dates: start: 202404

REACTIONS (8)
  - Nausea [Unknown]
  - Dizziness [Unknown]
  - Nail disorder [Unknown]
  - Depressed mood [Unknown]
  - Anxiety [Unknown]
  - Rash [Unknown]
  - Nasopharyngitis [Unknown]
  - Depression [Unknown]
